FAERS Safety Report 9822803 (Version 3)
Quarter: 2021Q3

REPORT INFORMATION
  Report Type: Spontaneous
  Country: US (occurrence: US)
  Receive Date: 20140116
  Receipt Date: 20210831
  Transmission Date: 20211014
  Serious: Yes (Other)
  Sender: FDA-Public Use
  Company Number: US-PFIZER INC-2013192966

PATIENT
  Age: 52 Year
  Sex: Female

DRUGS (8)
  1. PHENYTOIN SODIUM. [Suspect]
     Active Substance: PHENYTOIN SODIUM
     Indication: STATUS EPILEPTICUS
     Dosage: UNK
     Route: 042
  2. FLUCONAZOLE. [Suspect]
     Active Substance: FLUCONAZOLE
     Indication: IMMUNE SYSTEM DISORDER
     Dosage: UNK
  3. VANCOMYCIN [Concomitant]
     Active Substance: VANCOMYCIN
     Indication: IMMUNE SYSTEM DISORDER
     Dosage: UNK
  4. MEROPENEM. [Concomitant]
     Active Substance: MEROPENEM
     Indication: IMMUNE SYSTEM DISORDER
  5. MEROPENEM. [Concomitant]
     Active Substance: MEROPENEM
     Indication: HYPOTENSION
  6. FOSPHENYTOIN SODIUM. [Suspect]
     Active Substance: FOSPHENYTOIN SODIUM
     Indication: STATUS EPILEPTICUS
     Dosage: UNK
     Route: 042
  7. FLUCONAZOLE. [Suspect]
     Active Substance: FLUCONAZOLE
     Indication: HYPOTENSION
  8. VANCOMYCIN [Concomitant]
     Active Substance: VANCOMYCIN
     Indication: HYPOTENSION

REACTIONS (4)
  - Drug level above therapeutic [Unknown]
  - Toxicity to various agents [Unknown]
  - Electrocardiogram change [Unknown]
  - Sinus tachycardia [Unknown]
